FAERS Safety Report 4320330-1 (Version None)
Quarter: 2004Q1

REPORT INFORMATION
  Report Type: 
  Country: None (occurrence: None)
  Receive Date: 20040317
  Receipt Date: 20010410
  Transmission Date: 20041129
  Serious: Yes (Life-Threatening)
  Sender: FDA-Public Use
  Company Number: 200110185BYL

PATIENT
  Age: 51 Year
  Sex: Female
  Weight: 50 kg

DRUGS (11)
  1. CIPROXAN (CIPROFLOXACIN HYDROCHLORIDE) [Suspect]
     Indication: PNEUMONIA
     Dosage: 600 MG, TOTAL DAILY, INTRAVENOUS
     Route: 042
     Dates: start: 20010330, end: 20010402
  2. CIPROXAN (CIPROFLOXACIN HYDROCHLORIDE) [Suspect]
     Indication: PYREXIA
     Dosage: 600 MG, TOTAL DAILY, INTRAVENOUS
     Route: 042
     Dates: start: 20010330, end: 20010402
  3. LEVOFLOXACIN [Suspect]
     Dosage: 100 MG, TID, ORAL
     Route: 048
     Dates: start: 20010323, end: 20010329
  4. PREDONINE [Concomitant]
  5. PROTECADIN /JPN/ [Concomitant]
  6. ALFAROL [Concomitant]
  7. PLETAL [Concomitant]
  8. ADALAT [Concomitant]
  9. VOLTAREN [Concomitant]
  10. DENOSINE ^SYNTEX LABORATORIES^ [Concomitant]
  11. NEO-MINOPHAGEN C [Concomitant]

REACTIONS (3)
  - CONDITION AGGRAVATED [None]
  - EOSINOPHIL COUNT INCREASED [None]
  - INTERSTITIAL LUNG DISEASE [None]
